FAERS Safety Report 19069865 (Version 1)
Quarter: 2021Q1

REPORT INFORMATION
  Report Type: Spontaneous
  Country: JP (occurrence: JP)
  Receive Date: 20210329
  Receipt Date: 20210329
  Transmission Date: 20210420
  Serious: Yes (Hospitalization, Other)
  Sender: FDA-Public Use
  Company Number: JP-GLAXOSMITHKLINE-JP2021JPN067676

PATIENT
  Age: 79 Year
  Sex: Male

DRUGS (1)
  1. REQUIP [Suspect]
     Active Substance: ROPINIROLE HYDROCHLORIDE
     Indication: PARKINSON^S DISEASE
     Dosage: 6 MG
     Route: 048

REACTIONS (9)
  - Gaze palsy [Unknown]
  - Gait inability [Unknown]
  - Muscle rigidity [Unknown]
  - Akinesia [Unknown]
  - Mental impairment [Unknown]
  - Torticollis [Unknown]
  - Oromandibular dystonia [Recovering/Resolving]
  - Progressive supranuclear palsy [Unknown]
  - Blepharospasm [Unknown]
